FAERS Safety Report 17178801 (Version 2)
Quarter: 2020Q1

REPORT INFORMATION
  Report Type: Spontaneous
  Country: JP (occurrence: JP)
  Receive Date: 20191219
  Receipt Date: 20200127
  Transmission Date: 20200409
  Serious: Yes (Hospitalization)
  Sender: FDA-Public Use
  Company Number: JP-BRISTOL-MYERS SQUIBB COMPANY-BMS-2019-120654

PATIENT
  Age: 78 Year
  Sex: Female

DRUGS (1)
  1. ORENCIA [Suspect]
     Active Substance: ABATACEPT
     Indication: RHEUMATIC DISORDER
     Dosage: SC INJECTION 125 MG AUTOINJECTOR 1 ML
     Route: 058

REACTIONS (2)
  - Pubis fracture [Unknown]
  - Fractured sacrum [Unknown]

NARRATIVE: CASE EVENT DATE: 20191212
